FAERS Safety Report 4987195-6 (Version None)
Quarter: 2006Q2

REPORT INFORMATION
  Report Type: 
  Country: None (occurrence: None)
  Receive Date: 20060501
  Receipt Date: 20060419
  Transmission Date: 20061013
  Serious: Yes (Death, Other)
  Sender: FDA-Public Use
  Company Number: FR-BRISTOL-MYERS SQUIBB COMPANY-13357827

PATIENT
  Age: 46 Year
  Sex: Female

DRUGS (11)
  1. HOLOXAN [Suspect]
     Indication: DRUG USE FOR UNKNOWN INDICATION
     Route: 042
     Dates: start: 20050620, end: 20050622
  2. UROMITEXAN INJ [Suspect]
     Indication: DRUG USE FOR UNKNOWN INDICATION
     Route: 042
     Dates: start: 20050620, end: 20050622
  3. ADRIAMYCIN PFS [Suspect]
     Indication: DRUG USE FOR UNKNOWN INDICATION
     Route: 042
     Dates: start: 20050620, end: 20050620
  4. LOVENOX [Concomitant]
  5. MYOLASTAN [Concomitant]
  6. CORTANCYL [Concomitant]
  7. DEPAKENE [Concomitant]
  8. MOPRAL [Concomitant]
  9. DI-ANTALVIC [Concomitant]
  10. FERROUS SULFATE TAB [Concomitant]
  11. CORDARONE [Concomitant]

REACTIONS (4)
  - APLASIA [None]
  - ENCEPHALITIS [None]
  - ESCHERICHIA SEPSIS [None]
  - GENERAL PHYSICAL HEALTH DETERIORATION [None]
